FAERS Safety Report 8000403 (Version 2)
Quarter: 2013Q1

REPORT INFORMATION
  Report Type: Spontaneous
  Country: US (occurrence: US)
  Receive Date: 20110621
  Receipt Date: 20130102
  Transmission Date: 20140127
  Serious: No
  Sender: FDA-Public Use
  Company Number: US-ASTRAZENECA-2004UW07958

PATIENT
  Age: 59 Year
  Sex: Female
  Weight: 124.7 kg

DRUGS (2)
  1. ATACAND [Suspect]
     Indication: HYPERTENSION
     Route: 048
     Dates: start: 1999
  2. VESICARE [Concomitant]

REACTIONS (6)
  - Weight increased [Unknown]
  - Myalgia [Unknown]
  - Weight loss poor [Unknown]
  - Muscle spasms [Unknown]
  - Oedema peripheral [Not Recovered/Not Resolved]
  - Bone disorder [Unknown]
